FAERS Safety Report 21067278 (Version 1)
Quarter: 2022Q3

REPORT INFORMATION
  Report Type: Spontaneous
  Country: IN (occurrence: IN)
  Receive Date: 20220712
  Receipt Date: 20220712
  Transmission Date: 20221027
  Serious: Yes (Hospitalization, Other)
  Sender: FDA-Public Use
  Company Number: IN-SUN PHARMACEUTICAL INDUSTRIES LTD-2022R1-343793

PATIENT
  Sex: Female

DRUGS (16)
  1. AMPICILLIN [Suspect]
     Active Substance: AMPICILLIN
     Indication: Product used for unknown indication
     Dosage: 2 GRAM
     Route: 064
  2. ENOXAPARIN SODIUM [Suspect]
     Active Substance: ENOXAPARIN SODIUM
     Indication: Antiphospholipid syndrome
     Dosage: 40 UNITS/QD
     Route: 064
  3. RANITIDINE [Suspect]
     Active Substance: RANITIDINE
     Indication: Product used for unknown indication
     Dosage: 50 MILLIGRAM
     Route: 064
  4. VECURONIUM [Suspect]
     Active Substance: VECURONIUM BROMIDE
     Indication: Hypotonia
     Dosage: 0.02 MILLIGRAM/KILOGRAM
     Route: 064
  5. FUROSEMIDE [Suspect]
     Active Substance: FUROSEMIDE
     Indication: Antiphospholipid syndrome
     Dosage: 20 MILLIGRAM
     Route: 064
  6. FERROUS SULFATE [Suspect]
     Active Substance: FERROUS SULFATE
     Indication: Antiphospholipid syndrome
     Dosage: UNK
     Route: 064
  7. ASPIRIN [Suspect]
     Active Substance: ASPIRIN
     Indication: Antiphospholipid syndrome
     Dosage: 75 MILLIGRAM, QD
     Route: 064
  8. METOCLOPRAMIDE [Suspect]
     Active Substance: METOCLOPRAMIDE
     Indication: Product used for unknown indication
     Dosage: 10 MILLIGRAM
     Route: 064
  9. CALCIUM [Suspect]
     Active Substance: CALCIUM
     Indication: Antiphospholipid syndrome
     Dosage: UNK
     Route: 064
  10. ETOMIDATE [Suspect]
     Active Substance: ETOMIDATE
     Indication: Anaesthesia
     Dosage: 0.2 MILLIGRAM/KILOGRAM
     Route: 064
  11. GENTAMICIN [Suspect]
     Active Substance: GENTAMICIN
     Indication: Product used for unknown indication
     Dosage: 80 MILLIGRAM
     Route: 064
  12. ISOFLURANE [Suspect]
     Active Substance: ISOFLURANE
     Indication: Anaesthesia
     Dosage: 1.5 PERCENT
     Route: 064
  13. KETAMINE [Suspect]
     Active Substance: KETAMINE
     Indication: Anaesthesia
     Dosage: 1 MILLIGRAM/KILOGRAM/50 MG OVER 1 MINUTE
     Route: 064
  14. ARGININE [Suspect]
     Active Substance: ARGININE
     Indication: Antiphospholipid syndrome
     Route: 064
  15. LIDOCAINE HYDROCHLORIDE [Suspect]
     Active Substance: LIDOCAINE HYDROCHLORIDE
     Indication: Local anaesthesia
     Dosage: 10 PERCENT (BASE OF THE TONGUE AND THE POSTERIOR PHARYNGEAL WALL)
     Route: 064
  16. SUCCINYLCHOLINE [Suspect]
     Active Substance: SUCCINYLCHOLINE
     Indication: Anaesthesia
     Dosage: 1 MILLIGRAM/KILOGRAM/50 MG
     Route: 064

REACTIONS (3)
  - Neonatal asphyxia [Recovering/Resolving]
  - Foetal exposure during pregnancy [Unknown]
  - Premature baby [Unknown]
